FAERS Safety Report 7463856-4 (Version None)
Quarter: 2011Q2

REPORT INFORMATION
  Report Type: 
  Country: None (occurrence: None)
  Receive Date: 20110506
  Receipt Date: 20110503
  Transmission Date: 20111010
  Serious: Yes (Hospitalization)
  Sender: FDA-Public Use
  Company Number: CH-BRISTOL-MYERS SQUIBB COMPANY-15714405

PATIENT
  Age: 75 Year
  Sex: Male

DRUGS (5)
  1. YERVOY [Suspect]
     Indication: MALIGNANT MELANOMA
     Dosage: VIAL# 216906-216907,216910-216911,255136-255140
     Route: 042
     Dates: start: 20110302, end: 20110419
  2. NAVOBAN [Concomitant]
  3. DAFALGAN [Concomitant]
  4. TRANSIPEG [Concomitant]
  5. ZURCAL [Concomitant]

REACTIONS (1)
  - INFECTION [None]
